FAERS Safety Report 15787613 (Version 3)
Quarter: 2019Q1

REPORT INFORMATION
  Report Type: Report from Study
  Country: US (occurrence: US)
  Receive Date: 20190103
  Receipt Date: 20190329
  Transmission Date: 20190417
  Serious: Yes (Hospitalization)
  Sender: FDA-Public Use
  Company Number: US-GILEAD-2018-0377889

PATIENT
  Age: 30 Year
  Sex: Female
  Weight: 61 kg

DRUGS (6)
  1. FLUDARABINE [Suspect]
     Active Substance: FLUDARABINE PHOSPHATE
     Indication: BONE MARROW CONDITIONING REGIMEN
     Dosage: 50 MG, QD
     Route: 042
     Dates: start: 20181205, end: 20181207
  2. MESNA. [Suspect]
     Active Substance: MESNA
     Dosage: 840
     Route: 065
     Dates: start: 20181206, end: 20181207
  3. MESNA. [Suspect]
     Active Substance: MESNA
     Dosage: 840
     Route: 065
     Dates: start: 20181207, end: 20181208
  4. MESNA. [Suspect]
     Active Substance: MESNA
     Indication: PROPHYLAXIS
     Dosage: 840
     Route: 065
     Dates: start: 20181205, end: 20181206
  5. AXICABTAGENE CILOLEUCEL [Suspect]
     Active Substance: AXICABTAGENE CILOLEUCEL
     Indication: DIFFUSE LARGE B-CELL LYMPHOMA
     Dosage: UNK UNK, ONCE
     Route: 042
     Dates: start: 20181210, end: 20181210
  6. CYCLOPHOSPHAMIDE. [Suspect]
     Active Substance: CYCLOPHOSPHAMIDE
     Indication: BONE MARROW CONDITIONING REGIMEN
     Dosage: 840 MG, QD
     Route: 042
     Dates: start: 20181205, end: 20181207

REACTIONS (4)
  - Hypoaesthesia [Recovered/Resolved]
  - Sinusitis [Recovered/Resolved]
  - Rhinovirus infection [Recovered/Resolved]
  - Hemiparesis [Recovered/Resolved]

NARRATIVE: CASE EVENT DATE: 20181126
